FAERS Safety Report 7123942-5 (Version None)
Quarter: 2010Q4

REPORT INFORMATION
  Report Type: 
  Country: None (occurrence: None)
  Receive Date: 20101126
  Receipt Date: 20101112
  Transmission Date: 20110411
  Serious: No
  Sender: FDA-Public Use
  Company Number: US-PFIZER INC-2010149624

PATIENT
  Sex: Female
  Weight: 49.887 kg

DRUGS (6)
  1. PREMARIN [Suspect]
     Indication: VULVOVAGINAL DRYNESS
     Dosage: 0.5 MG, 2X/WEEK (3 OR 4 DAYS APART)
     Dates: start: 20101028
  2. SUDAFED 12 HOUR [Concomitant]
     Indication: SINUS DISORDER
     Dosage: UNK
  3. FISH OIL [Concomitant]
     Indication: DRY EYE
     Dosage: UNK
  4. CALCIUM [Concomitant]
     Dosage: UNK
  5. FOSAMAX [Concomitant]
     Dosage: UNK
  6. MULTI-VITAMINS [Concomitant]
     Dosage: UNK

REACTIONS (1)
  - VULVOVAGINAL DRYNESS [None]
